FAERS Safety Report 15060663 (Version 1)
Quarter: 2018Q2

REPORT INFORMATION
  Report Type: Spontaneous
  Country: SE (occurrence: SE)
  Receive Date: 20180625
  Receipt Date: 20180625
  Transmission Date: 20180711
  Serious: Yes (Hospitalization)
  Sender: FDA-Public Use
  Company Number: SE-PFIZER INC-2018251766

PATIENT
  Age: 75 Year
  Sex: Female

DRUGS (1)
  1. DOLCONTIN [Suspect]
     Active Substance: MORPHINE
     Indication: PAIN
     Dosage: 10 MG, DAILY
     Route: 048
     Dates: start: 20180413, end: 20180415

REACTIONS (3)
  - Accidental poisoning [Recovered/Resolved]
  - Dizziness [Recovered/Resolved]
  - Vomiting [Recovered/Resolved]

NARRATIVE: CASE EVENT DATE: 20180413
